FAERS Safety Report 8217898-1 (Version None)
Quarter: 2012Q1

REPORT INFORMATION
  Report Type: 
  Country: None (occurrence: None)
  Receive Date: 20120319
  Receipt Date: 20120309
  Transmission Date: 20120608
  Serious: Yes (Hospitalization)
  Sender: FDA-Public Use
  Company Number: US-BAYER-2011-094186

PATIENT
  Age: 28 Year
  Sex: Female
  Weight: 68.027 kg

DRUGS (8)
  1. DROSPIRENONE AND ETHINYL ESTRADIOL [Suspect]
     Dosage: UNK
     Dates: start: 20010101, end: 20090101
  2. MULTI-VITAMINS [Concomitant]
  3. YAZ [Suspect]
     Dosage: UNK
     Dates: start: 20010101, end: 20090101
  4. YAZ [Suspect]
     Dosage: UNK
     Dates: start: 20010101, end: 20090101
  5. YASMIN [Suspect]
     Dosage: UNK
     Dates: start: 20010101, end: 20090101
  6. WELLBUTRIN [Concomitant]
  7. YASMIN [Suspect]
     Dosage: UNK
     Dates: start: 20010101, end: 20090101
  8. DROSPIRENONE AND ETHINYL ESTRADIOL [Suspect]
     Dosage: UNK
     Dates: start: 20010101, end: 20090101

REACTIONS (3)
  - PAIN [None]
  - CHOLECYSTITIS CHRONIC [None]
  - GALLBLADDER DISORDER [None]
